FAERS Safety Report 5259915-7 (Version None)
Quarter: 2007Q1

REPORT INFORMATION
  Report Type: 
  Country: None (occurrence: None)
  Receive Date: 20070309
  Receipt Date: 20070227
  Transmission Date: 20070707
  Serious: Yes (Other)
  Sender: FDA-Public Use
  Company Number: JP-ROCHE-485390

PATIENT
  Age: 28 Year
  Sex: Female

DRUGS (1)
  1. TAMIFLU [Suspect]
     Indication: INFLUENZA
     Route: 048
     Dates: start: 20070220, end: 20070221

REACTIONS (4)
  - ABNORMAL BEHAVIOUR [None]
  - EUPHORIC MOOD [None]
  - INSOMNIA [None]
  - THIRST [None]
